FAERS Safety Report 16030878 (Version 2)
Quarter: 2019Q1

REPORT INFORMATION
  Report Type: Spontaneous
  Country: US (occurrence: US)
  Receive Date: 20190304
  Receipt Date: 20190326
  Transmission Date: 20190418
  Serious: No
  Sender: FDA-Public Use
  Company Number: US-PFIZER INC-2019091901

PATIENT
  Age: 62 Year

DRUGS (1)
  1. LYRICA [Suspect]
     Active Substance: PREGABALIN
     Indication: INTERVERTEBRAL DISC PROTRUSION
     Dosage: UNK

REACTIONS (4)
  - Malaise [Unknown]
  - Depressed mood [Unknown]
  - Pain [Unknown]
  - Swelling [Unknown]
